FAERS Safety Report 6702045-5 (Version None)
Quarter: 2010Q2

REPORT INFORMATION
  Report Type: 
  Country: None (occurrence: None)
  Receive Date: 20100429
  Receipt Date: 20100423
  Transmission Date: 20101027
  Serious: Yes (Death, Hospitalization)
  Sender: FDA-Public Use
  Company Number: NL-ROCHE-699413

PATIENT
  Sex: Male
  Weight: 24 kg

DRUGS (4)
  1. OSELTAMIVIR PHOSPHATE [Suspect]
     Route: 048
     Dates: start: 20091106
  2. INFLUVAC [Suspect]
     Dosage: FREQUENCY: ONCE.
     Route: 065
     Dates: start: 20091028
  3. FOCETRIA [Suspect]
     Dosage: FREQUENCY: ONCE. DRUG REPORTED AS FOCETRIA/ PANDEMIC INFLUENZA
     Route: 065
     Dates: start: 20091107
  4. DICLOFENAC [Suspect]
     Indication: PAIN
     Route: 065
     Dates: start: 20091106

REACTIONS (3)
  - ACUTE LYMPHOCYTIC LEUKAEMIA [None]
  - ARTHRITIS [None]
  - DEATH [None]
